FAERS Safety Report 4898976-1 (Version None)
Quarter: 2006Q1

REPORT INFORMATION
  Report Type: 
  Country: None (occurrence: None)
  Receive Date: 20060127
  Receipt Date: 20060109
  Transmission Date: 20060701
  Serious: Yes (Death)
  Sender: FDA-Public Use
  Company Number: US200601001750

PATIENT
  Sex: Male

DRUGS (1)
  1. XIGRIS [Suspect]
     Dosage: UG/KG/HR, INTRAVENOUS
     Route: 042
     Dates: start: 20030101, end: 20030101

REACTIONS (1)
  - DEATH [None]
